FAERS Safety Report 5764209-7 (Version None)
Quarter: 2008Q2

REPORT INFORMATION
  Report Type: 
  Country: None (occurrence: None)
  Receive Date: 20080609
  Receipt Date: 20080429
  Transmission Date: 20081010
  Serious: No
  Sender: FDA-Public Use
  Company Number: 002#2#2008-00307

PATIENT
  Age: 89 Year
  Sex: Female
  Weight: 79.3795 kg

DRUGS (2)
  1. NEUPRO [Suspect]
     Indication: RESTLESS LEGS SYNDROME
     Dosage: 6MG/24H, 1 IN 1 D, TRANSDERMAL
     Route: 062
     Dates: start: 20080101
  2. MIRAPEX [Concomitant]

REACTIONS (1)
  - OFF LABEL USE [None]
